FAERS Safety Report 6853328-X (Version None)
Quarter: 2010Q3

REPORT INFORMATION
  Report Type: 
  Country: None (occurrence: None)
  Receive Date: 20100717
  Receipt Date: 20071203
  Transmission Date: 20110219
  Serious: Yes (Other)
  Sender: FDA-Public Use
  Company Number: US-PFIZER INC-2007104087

PATIENT
  Sex: Female
  Weight: 68.181 kg

DRUGS (6)
  1. CHANTIX [Suspect]
     Indication: SMOKING CESSATION THERAPY
     Dates: start: 20070701, end: 20071101
  2. PREVACID [Concomitant]
  3. CARAFATE [Concomitant]
  4. PERCOCET [Concomitant]
  5. ALL OTHER THERAPEUTIC PRODUCTS [Concomitant]
  6. XANAX [Concomitant]

REACTIONS (3)
  - ABDOMINAL PAIN UPPER [None]
  - ANAEMIA [None]
  - HEADACHE [None]
